FAERS Safety Report 5165828-1 (Version None)
Quarter: 2006Q4

REPORT INFORMATION
  Report Type: 
  Country: None (occurrence: None)
  Receive Date: 20061128
  Receipt Date: 20061115
  Transmission Date: 20070319
  Serious: Yes (Death)
  Sender: FDA-Public Use
  Company Number: 231511

PATIENT
  Age: 50 Year
  Sex: Male
  Weight: 57 kg

DRUGS (18)
  1. RITUXAN [Suspect]
     Indication: NON-HODGKIN'S LYMPHOMA
     Dosage: 620 MG, INTRAVENOUS
     Route: 042
     Dates: start: 20061002
  2. POLARAMINE [Concomitant]
  3. ACETAMINOPHEN [Concomitant]
  4. CEFAZOLIN SODIUM [Concomitant]
  5. DEPAS (ETIZOLAM) [Concomitant]
  6. LOXONIN (LOXOPROFEN SODIUM) [Concomitant]
  7. LENDORM [Concomitant]
  8. TIZANIDINE HCL [Concomitant]
  9. GRAMALIL (TIAPRIDE HYDROCHLORIDE) [Concomitant]
  10. ISOBIDE (ISOSORBIDE NOS) [Concomitant]
  11. LANSOPRAZOLE [Concomitant]
  12. PRIMPERAN ELIXIR [Concomitant]
  13. GLYCEOL (GLYCERIN) [Concomitant]
  14. DECADRON [Concomitant]
  15. DECADRON PHOSPHATE [Concomitant]
  16. ISONIAZID [Concomitant]
  17. SULFAMETHOXAZOLE + TRIMETHOPRIM [Concomitant]
  18. FAMOTIDINE [Concomitant]

REACTIONS (13)
  - BLOOD ALKALINE PHOSPHATASE INCREASED [None]
  - BLOOD PRESSURE INCREASED [None]
  - BODY TEMPERATURE INCREASED [None]
  - CARDIAC ARREST [None]
  - CEREBRAL HAEMORRHAGE [None]
  - CEREBRAL INFARCTION [None]
  - CHEYNE-STOKES RESPIRATION [None]
  - DEPRESSED LEVEL OF CONSCIOUSNESS [None]
  - HEART RATE INCREASED [None]
  - MENINGEAL DISORDER [None]
  - OXYGEN SATURATION DECREASED [None]
  - SOMNOLENCE [None]
  - URINARY INCONTINENCE [None]
